FAERS Safety Report 24319316 (Version 8)
Quarter: 2024Q4

REPORT INFORMATION
  Report Type: Spontaneous
  Country: US (occurrence: US)
  Receive Date: 20240914
  Receipt Date: 20241021
  Transmission Date: 20250115
  Serious: Yes (Other)
  Sender: ROCHE
  Company Number: US-ROCHE-3552405

PATIENT
  Age: 44 Year
  Sex: Female
  Weight: 88.0 kg

DRUGS (4)
  1. XOLAIR [Suspect]
     Active Substance: OMALIZUMAB
     Indication: Chronic spontaneous urticaria
     Dosage: ONGOING, STRENGTH:300MG/2ML, DOSAGE INFORMATION: 150 MG/1 ML
     Route: 065
     Dates: start: 202404
  2. XOLAIR [Suspect]
     Active Substance: OMALIZUMAB
     Route: 065
  3. XOLAIR [Suspect]
     Active Substance: OMALIZUMAB
     Route: 065
  4. LEVOTHYROXINE [Concomitant]
     Active Substance: LEVOTHYROXINE
     Dosage: 12.5MCG EVERY DAY GIVEN AS 25MCG 1/2 TABLET DAILYFOR A THYROID ISSUE.

REACTIONS (8)
  - Pruritus [Unknown]
  - Swelling face [Unknown]
  - Odynophagia [Unknown]
  - Urticaria [Not Recovered/Not Resolved]
  - Underdose [Unknown]
  - Off label use [Unknown]
  - Device malfunction [Unknown]
  - Accidental exposure to product [Unknown]

NARRATIVE: CASE EVENT DATE: 20240401
